FAERS Safety Report 6442436-3 (Version None)
Quarter: 2009Q4

REPORT INFORMATION
  Report Type: 
  Country: None (occurrence: None)
  Receive Date: 20091112
  Receipt Date: 20091102
  Transmission Date: 20100525
  Serious: Yes (Other)
  Sender: FDA-Public Use
  Company Number: 2009AL006987

PATIENT
  Age: 38 Year
  Sex: Male

DRUGS (2)
  1. NALTREXONE HYDROCHLORIDE [Suspect]
     Indication: ALCOHOL WITHDRAWAL SYNDROME
     Dosage: 50 MG;QD
  2. BUPRENORPHINE [Concomitant]

REACTIONS (4)
  - ABNORMAL BEHAVIOUR [None]
  - ANTEROGRADE AMNESIA [None]
  - DRUG WITHDRAWAL SYNDROME [None]
  - THEFT [None]
